FAERS Safety Report 9755394 (Version 1)
Quarter: 2013Q4

REPORT INFORMATION
  Report Type: Spontaneous
  Country: US (occurrence: US)
  Receive Date: 20131213
  Receipt Date: 20131213
  Transmission Date: 20140711
  Serious: No
  Sender: FDA-Public Use
  Company Number: US-GLAXOSMITHKLINE-A1017474A

PATIENT
  Sex: Male

DRUGS (2)
  1. NICODERM CQ [Suspect]
     Indication: EX-TOBACCO USER
  2. NICORETTE OTC 4MG [Suspect]
     Indication: EX-TOBACCO USER

REACTIONS (6)
  - Overdose [Recovered/Resolved]
  - Psychomotor hyperactivity [Recovered/Resolved]
  - Drug administration error [Unknown]
  - Drug ineffective [Unknown]
  - Gastric disorder [Recovered/Resolved]
  - Diarrhoea [Recovered/Resolved]
